FAERS Safety Report 5455124-7 (Version None)
Quarter: 2007Q3

REPORT INFORMATION
  Report Type: 
  Country: None (occurrence: None)
  Receive Date: 20070914
  Receipt Date: 20070904
  Transmission Date: 20080115
  Serious: Yes (Death)
  Sender: FDA-Public Use
  Company Number: CHNY2007DE02817

PATIENT
  Age: 23 Year
  Sex: Male
  Weight: 90 kg

DRUGS (16)
  1. NICOTINE [Suspect]
     Dosage: 21 MG, TRANSDERMAL
     Route: 062
  2. FENTANYL [Concomitant]
  3. TRAMADOLOR (TRAMADOL HYDROCHLORIDE) [Concomitant]
  4. IBUPROFEN [Concomitant]
  5. ASPIRIN PLUS C (ACETYLSALICYLIC ACID, ASCORBIC ACID) [Concomitant]
  6. DYSTO-LOGES N [Concomitant]
  7. FLUOXETINE [Concomitant]
  8. THOMAPYRIN (ACETYLSALICYLIC ACID, CAFFEINE, PHENACETIN) [Concomitant]
  9. FLUNET ACTIV PUNKT [Concomitant]
  10. WICK VAPORUB ERKAELTUNGSSALBE (CAMPHOR, EUCALYPTUS GLOBULUS OIL, EUCAL [Concomitant]
  11. BALDIPAREN [Concomitant]
  12. AZITHROMYCIN [Concomitant]
  13. DICLOFENAC AL (DICLOFENAC SODIUM) [Concomitant]
  14. KOHLEKOMPRTTEN [Concomitant]
  15. TRAMADOL ^RATIOPHARM^ (TRAMADOL HYDROCHLORIDE) [Concomitant]
  16. DOXEPIN HCL [Concomitant]

REACTIONS (1)
  - CIRCULATORY COLLAPSE [None]
